FAERS Safety Report 26177957 (Version 1)
Quarter: 2025Q4

REPORT INFORMATION
  Report Type: Report from Study
  Country: AR (occurrence: AR)
  Receive Date: 20251219
  Receipt Date: 20251219
  Transmission Date: 20260118
  Serious: Yes (Other)
  Sender: JOHNSON AND JOHNSON
  Company Number: AR-JNJFOC-20251216721

PATIENT
  Age: 8 Decade
  Sex: Male
  Weight: 80 kg

DRUGS (1)
  1. BALVERSA [Suspect]
     Active Substance: ERDAFITINIB
     Indication: Transitional cell carcinoma
     Route: 048

REACTIONS (5)
  - Cataract [Recovered/Resolved]
  - Dry eye [Recovered/Resolved]
  - Dry mouth [Recovered/Resolved]
  - Nail disorder [Recovered/Resolved]
  - Genital dryness [Unknown]

NARRATIVE: CASE EVENT DATE: 20230101
